FAERS Safety Report 4618675-0 (Version None)
Quarter: 2005Q2

REPORT INFORMATION
  Report Type: 
  Country: None (occurrence: None)
  Receive Date: 20050311
  Receipt Date: 20041108
  Transmission Date: 20051028
  Serious: No
  Sender: FDA-Public Use
  Company Number: 2004-BP-09773BP

PATIENT
  Sex: Female

DRUGS (12)
  1. SPIRIVA [Suspect]
     Indication: ASTHMA
     Dosage: NR (18 MCG), IH
     Route: 055
     Dates: start: 20040801
  2. SPIRIVA [Suspect]
     Indication: CHRONIC OBSTRUCTIVE PULMONARY DISEASE
     Dosage: NR (18 MCG), IH
     Route: 055
     Dates: start: 20040801
  3. ADVAIR DISKUS 100/50 [Concomitant]
  4. SINGULAIR [Concomitant]
  5. IPRATROPIUM BROMIDE [Concomitant]
  6. XOPENEX [Concomitant]
  7. PRAVACHOL [Concomitant]
  8. DESIPRAMINE HCL [Concomitant]
  9. FOSAMAX [Concomitant]
  10. MAXAIR [Concomitant]
  11. ASPIRIN [Concomitant]
  12. SPIRIVA [Suspect]

REACTIONS (1)
  - DRUG INEFFECTIVE [None]
